FAERS Safety Report 21626608 (Version 2)
Quarter: 2023Q2

REPORT INFORMATION
  Report Type: Spontaneous
  Country: JP (occurrence: JP)
  Receive Date: 20221122
  Receipt Date: 20230418
  Transmission Date: 20230722
  Serious: Yes (Hospitalization, Other)
  Sender: FDA-Public Use
  Company Number: JP-SA-2022SA004713

PATIENT
  Age: 3 Month
  Sex: Male
  Weight: 7.1 kg

DRUGS (68)
  1. SABRIL [Suspect]
     Active Substance: VIGABATRIN
     Indication: Infantile spasms
     Dosage: DAILY DOSE: 42 MG/KG/DAY, 300 MG/DAY, BID
     Route: 048
     Dates: start: 20210420, end: 20210424
  2. SABRIL [Suspect]
     Active Substance: VIGABATRIN
     Dosage: UNK, BID
     Route: 048
     Dates: start: 20210425, end: 20210501
  3. SABRIL [Suspect]
     Active Substance: VIGABATRIN
     Dosage: UNK, BID
     Route: 048
     Dates: start: 20210502, end: 20210508
  4. SABRIL [Suspect]
     Active Substance: VIGABATRIN
     Dosage: DAILY DOSE: 105 MG/KG/DAY, 800 MG/DAY, BID
     Route: 048
     Dates: start: 20210509, end: 20210515
  5. SABRIL [Suspect]
     Active Substance: VIGABATRIN
     Dosage: DAILY DOSE: 121 MG/KG/DAY, 950 MG/DAY, BID
     Route: 048
     Dates: start: 20210516, end: 20210612
  6. SABRIL [Suspect]
     Active Substance: VIGABATRIN
     Dosage: DAILY DOSE: 93 MG/KG/DAY, 800 MG/DAY, BID
     Route: 048
     Dates: start: 20210613, end: 20210821
  7. SABRIL [Suspect]
     Active Substance: VIGABATRIN
     Dosage: DAILY DOSE: 51 MG/KG/DAY, 500 MG/DAY, BID
     Route: 048
     Dates: start: 20210822, end: 20210829
  8. SABRIL [Suspect]
     Active Substance: VIGABATRIN
     Dosage: UNK, BID
     Route: 048
     Dates: start: 20210829, end: 20210904
  9. ACTHIB [Suspect]
     Active Substance: HAEMOPHILUS B CONJUGATE VACCINE (TETANUS TOXOID CONJUGATE)\HAEMOPHILUS INFLUENZAE TYPE B STRAIN 1482
     Indication: Immunisation
     Dosage: .5 ML
     Route: 058
     Dates: start: 20210410
  10. ACTHIB [Suspect]
     Active Substance: HAEMOPHILUS B CONJUGATE VACCINE (TETANUS TOXOID CONJUGATE)\HAEMOPHILUS INFLUENZAE TYPE B STRAIN 1482
     Dosage: .5 ML
     Route: 058
     Dates: start: 20210827
  11. BCG VACCINE [Suspect]
     Active Substance: BCG VACCINE
     Indication: Immunisation
     Dosage: DAILY DOSE: 1 DROP
     Route: 062
     Dates: start: 20210827, end: 20210827
  12. BIMMUGEN [Suspect]
     Active Substance: HEPATITIS B VIRUS VACCINE
     Indication: Immunisation
     Dosage: 0.25 ML
     Route: 058
     Dates: start: 20210410, end: 20210410
  13. BIMMUGEN [Suspect]
     Active Substance: HEPATITIS B VIRUS VACCINE
     Dosage: 0.25 ML
     Route: 058
     Dates: start: 20210827, end: 20210827
  14. PREVNAR 13 [Suspect]
     Active Substance: PNEUMOCOCCAL 13-VALENT CONJUGATE VACCINE
     Indication: Immunisation
     Dosage: 0.5 ML
     Route: 058
     Dates: start: 20210410, end: 20210410
  15. PREVNAR 13 [Suspect]
     Active Substance: PNEUMOCOCCAL 13-VALENT CONJUGATE VACCINE
     Dosage: 0.5 ML
     Route: 058
     Dates: start: 20210827, end: 20210827
  16. TETRABIK [Suspect]
     Active Substance: DIPHTHERIA AND TETANUS TOXOIDS AND ACELLULAR PERTUSSIS ADSORBED AND INACTIVATED POLIOVIRUS VACCINE
     Indication: Immunisation
     Dosage: 0.5 ML
     Route: 058
     Dates: start: 20210410, end: 20210410
  17. TETRABIK [Suspect]
     Active Substance: DIPHTHERIA AND TETANUS TOXOIDS AND ACELLULAR PERTUSSIS ADSORBED AND INACTIVATED POLIOVIRUS VACCINE
     Dosage: 0.5 ML
     Route: 058
     Dates: start: 20210827, end: 20210827
  18. CLOBAZAM [Concomitant]
     Active Substance: CLOBAZAM
     Indication: Product used for unknown indication
     Dosage: UNK
     Route: 065
  19. IMMUNE GLOBULIN NOS [Concomitant]
     Active Substance: IMMUNE GLOBULIN NOS
     Indication: Product used for unknown indication
     Dosage: UNK
     Route: 065
  20. VALPROATE SODIUM [Concomitant]
     Active Substance: VALPROATE SODIUM
     Indication: Infantile spasms
     Dosage: DAILY DOSE: 140 TO 360 MG
     Route: 048
     Dates: start: 20210412
  21. ZONISAMIDE [Concomitant]
     Active Substance: ZONISAMIDE
     Indication: Partial seizures
     Dosage: DAILY DOSE: 1 TO 40 MG
     Route: 048
     Dates: start: 20210205, end: 20210626
  22. ZONISAMIDE [Concomitant]
     Active Substance: ZONISAMIDE
     Indication: Infantile spasms
  23. CLONAZEPAM [Concomitant]
     Active Substance: CLONAZEPAM
     Indication: Product used for unknown indication
     Dosage: UNK
     Route: 065
  24. LEVETIRACETAM [Concomitant]
     Active Substance: LEVETIRACETAM
     Indication: Infantile spasms
     Dosage: DAILY DOSE: 90 TO 540 MG
     Route: 048
     Dates: start: 20210625
  25. LAMOTRIGINE [Concomitant]
     Active Substance: LAMOTRIGINE
     Indication: Product used for unknown indication
     Dosage: UNK
     Route: 065
  26. TOPIRAMATE [Concomitant]
     Active Substance: TOPIRAMATE
     Indication: Infantile spasms
     Dosage: DAILY DOSE: 9 TO 180 MG
     Route: 048
     Dates: start: 20210728
  27. VITAMIN B1 [Concomitant]
     Active Substance: THIAMINE HYDROCHLORIDE
     Indication: Infantile spasms
     Dosage: DAILY DOSE: 200 MG
     Route: 048
     Dates: start: 20210409, end: 20210412
  28. PROTIRELIN [Concomitant]
     Active Substance: PROTIRELIN
     Indication: Product used for unknown indication
     Dosage: UNK
     Route: 065
  29. TAURINE [Concomitant]
     Active Substance: TAURINE
     Indication: Product used for unknown indication
     Dosage: DAILY DOSE: 0.2 G
     Route: 048
     Dates: start: 20210420
  30. TAMBOCOR [Concomitant]
     Active Substance: FLECAINIDE ACETATE
     Indication: Product used for unknown indication
     Dosage: DAILY DOSE: 17 TO 30 MG
     Route: 048
     Dates: start: 20210118
  31. FERRIC PYROPHOSPHATE [Concomitant]
     Active Substance: FERRIC PYROPHOSPHATE
     Indication: Product used for unknown indication
     Dosage: DAILY DOSE: 2 TO 4 ML
     Route: 048
     Dates: start: 20210219, end: 20210626
  32. LEVOCARNITINE HYDROCHLORIDE [Concomitant]
     Active Substance: LEVOCARNITINE HYDROCHLORIDE
     Indication: Product used for unknown indication
     Dosage: DAILY DOSE: 2.1 ML
     Route: 048
     Dates: start: 20210428
  33. FUROSEMIDE [Concomitant]
     Active Substance: FUROSEMIDE
     Indication: Pneumonia
     Dosage: DAILY DOSE: 9 TO 15 MG
     Route: 048
     Dates: start: 20210619, end: 20210623
  34. FUROSEMIDE [Concomitant]
     Active Substance: FUROSEMIDE
     Indication: Pulmonary oedema
  35. SPIRONOLACTONE [Concomitant]
     Active Substance: SPIRONOLACTONE
     Indication: Pulmonary oedema
     Dosage: DAILY DOSE: 9 TO 15 MG
     Route: 048
     Dates: start: 20210619, end: 20210627
  36. SPIRONOLACTONE [Concomitant]
     Active Substance: SPIRONOLACTONE
     Indication: Pneumonia
  37. WIDECILLIN [AMOXICILLIN TRIHYDRATE] [Concomitant]
     Indication: Pneumonia
     Dosage: DAILY DOSE: 540 MG
     Route: 048
     Dates: start: 20210619, end: 20210625
  38. WIDECILLIN [AMOXICILLIN TRIHYDRATE] [Concomitant]
     Indication: Pulmonary oedema
  39. SULFAMETHOXAZOLE\TRIMETHOPRIM [Concomitant]
     Active Substance: SULFAMETHOXAZOLE\TRIMETHOPRIM
     Indication: Pneumonia
     Dosage: DAILY DOSE: 180 MG
     Route: 048
     Dates: start: 20210629, end: 20210724
  40. SULFAMETHOXAZOLE\TRIMETHOPRIM [Concomitant]
     Active Substance: SULFAMETHOXAZOLE\TRIMETHOPRIM
     Indication: Pulmonary oedema
  41. AZITHROMYCIN DIHYDRATE [Concomitant]
     Active Substance: AZITHROMYCIN DIHYDRATE
     Indication: Pneumonia
     Dosage: DAILY DOSE: 90 MG
     Route: 048
     Dates: start: 20210706, end: 20210708
  42. AZITHROMYCIN DIHYDRATE [Concomitant]
     Active Substance: AZITHROMYCIN DIHYDRATE
     Indication: Pulmonary oedema
  43. ROTATEQ [Concomitant]
     Active Substance: HUMAN ROTAVIRUS A TYPE G1P7(5) STRAIN WI79 LIVE ANTIGEN\HUMAN ROTAVIRUS A TYPE G2P7(5) STRAIN SC2 LI
     Indication: Immunisation
     Dosage: 2 ML
     Route: 048
     Dates: start: 20210410, end: 20210410
  44. NAUZELIN [Concomitant]
     Active Substance: DOMPERIDONE
     Indication: Vomiting
     Dosage: 6.7 MG
     Route: 061
     Dates: start: 20210702, end: 20210702
  45. NITRAZEPAM [Concomitant]
     Active Substance: NITRAZEPAM
     Indication: Product used for unknown indication
     Dosage: UNK
     Route: 065
  46. ROCEPHIN [Concomitant]
     Active Substance: CEFTRIAXONE SODIUM
     Indication: Pneumonia
     Dosage: DAILY DOSE: 1080 MG
     Route: 042
     Dates: start: 20210629, end: 20210705
  47. ROCEPHIN [Concomitant]
     Active Substance: CEFTRIAXONE SODIUM
     Indication: Pulmonary oedema
     Route: 042
  48. PICILLIBACTA [Concomitant]
     Active Substance: AMPICILLIN SODIUM\SULBACTAM SODIUM
     Indication: Pneumonia
     Dosage: DAILY DOSE: 1.350 MG
     Route: 042
     Dates: start: 20210709, end: 20210716
  49. PICILLIBACTA [Concomitant]
     Active Substance: AMPICILLIN SODIUM\SULBACTAM SODIUM
     Indication: Pulmonary oedema
     Route: 042
  50. TRICLOFOS SODIUM [Concomitant]
     Active Substance: TRICLOFOS SODIUM
     Indication: Immunisation
     Dosage: 4.5 ML
     Route: 048
     Dates: start: 20210331, end: 20210331
  51. TRICLOFOS SODIUM [Concomitant]
     Active Substance: TRICLOFOS SODIUM
     Dosage: 4.5 ML
     Route: 048
     Dates: start: 20210402, end: 20210402
  52. TRICLOFOS SODIUM [Concomitant]
     Active Substance: TRICLOFOS SODIUM
     Dosage: 4.5 ML
     Route: 048
     Dates: start: 20210405, end: 20210405
  53. TRICLOFOS SODIUM [Concomitant]
     Active Substance: TRICLOFOS SODIUM
     Dosage: 4.5 ML
     Route: 048
     Dates: start: 20210406, end: 20210406
  54. TRICLOFOS SODIUM [Concomitant]
     Active Substance: TRICLOFOS SODIUM
     Dosage: 4.5 ML
     Route: 048
     Dates: start: 20210413, end: 20210413
  55. TRICLOFOS SODIUM [Concomitant]
     Active Substance: TRICLOFOS SODIUM
     Dosage: 4.5 ML
     Route: 048
     Dates: start: 20210416, end: 20210416
  56. TRICLOFOS SODIUM [Concomitant]
     Active Substance: TRICLOFOS SODIUM
     Dosage: 4.5 ML
     Route: 048
     Dates: start: 20210430, end: 20210430
  57. TRICLOFOS SODIUM [Concomitant]
     Active Substance: TRICLOFOS SODIUM
     Dosage: 4.5 ML
     Route: 048
     Dates: start: 20210510, end: 20210510
  58. TRICLOFOS SODIUM [Concomitant]
     Active Substance: TRICLOFOS SODIUM
     Dosage: 4.5 ML
     Route: 048
     Dates: start: 20210514, end: 20210514
  59. TRICLOFOS SODIUM [Concomitant]
     Active Substance: TRICLOFOS SODIUM
     Dosage: 4.5 ML
     Route: 048
     Dates: start: 20210607, end: 20210607
  60. TRICLOFOS SODIUM [Concomitant]
     Active Substance: TRICLOFOS SODIUM
     Dosage: 4.5 ML
     Route: 048
     Dates: start: 20210614, end: 20210615
  61. TRICLOFOS SODIUM [Concomitant]
     Active Substance: TRICLOFOS SODIUM
     Dosage: 4.5 ML
     Route: 048
     Dates: start: 20210621, end: 20210621
  62. TRICLOFOS SODIUM [Concomitant]
     Active Substance: TRICLOFOS SODIUM
     Dosage: 4.5 ML
     Route: 048
     Dates: start: 20210721, end: 20210721
  63. TRICLOFOS SODIUM [Concomitant]
     Active Substance: TRICLOFOS SODIUM
     Dosage: 4.5 ML
     Route: 048
     Dates: start: 20210724, end: 20210724
  64. TRICLOFOS SODIUM [Concomitant]
     Active Substance: TRICLOFOS SODIUM
     Dosage: 4.5 ML
     Route: 048
     Dates: start: 20210803, end: 20210803
  65. VEEN 3G [Concomitant]
     Indication: Immunisation
     Dosage: 10-30 ML/KG
     Route: 041
     Dates: start: 20210425, end: 20210427
  66. VEEN 3G [Concomitant]
     Dosage: 10-30 ML/KG
     Route: 041
     Dates: start: 20210501, end: 20210503
  67. VEEN 3G [Concomitant]
     Dosage: 10-30 ML/KG
     Route: 041
     Dates: start: 20210629, end: 20210705
  68. VEEN 3G [Concomitant]
     Dosage: 10-30 ML/KG
     Route: 041
     Dates: start: 20210709, end: 20210716

REACTIONS (7)
  - Pneumonia [Recovering/Resolving]
  - Pulmonary oedema [Recovering/Resolving]
  - Magnetic resonance imaging abnormal [Unknown]
  - Alanine aminotransferase decreased [Not Recovered/Not Resolved]
  - Pyrexia [Recovering/Resolving]
  - Vomiting [Recovering/Resolving]
  - Vomiting [Recovering/Resolving]

NARRATIVE: CASE EVENT DATE: 20210425
